FAERS Safety Report 5031709-7 (Version None)
Quarter: 2006Q2

REPORT INFORMATION
  Report Type: 
  Country: None (occurrence: None)
  Receive Date: 20060616
  Receipt Date: 20060531
  Transmission Date: 20061013
  Serious: Yes (Hospitalization, Other)
  Sender: FDA-Public Use
  Company Number: US200601003115

PATIENT
  Age: 79 Year
  Sex: Female
  Weight: 56.7 kg

DRUGS (9)
  1. FORTEO [Suspect]
     Indication: FRACTURE
     Dates: start: 20050101
  2. FORTEO PEN (FORTEO PEN) PEN, DISPOSABLE [Concomitant]
  3. DETROL [Concomitant]
  4. LOPRESSOR [Concomitant]
  5. CELLIDRIN (ALLOPURINOL) [Concomitant]
  6. ZOLOFT [Concomitant]
  7. PHENERGAN (PROMETHAZINE HYDROCHLORIDE) [Concomitant]
  8. FENTAL (TEGAFUR) [Concomitant]
  9. REMERON [Concomitant]

REACTIONS (5)
  - BACK PAIN [None]
  - FALL [None]
  - NAUSEA [None]
  - PELVIC FRACTURE [None]
  - VOMITING [None]
